FAERS Safety Report 9111109 (Version 1)
Quarter: 2013Q1

REPORT INFORMATION
  Report Type: Spontaneous
  Country: US (occurrence: US)
  Receive Date: 20130219
  Receipt Date: 20130219
  Transmission Date: 20140127
  Serious: No
  Sender: FDA-Public Use
  Company Number: US-BRISTOL-MYERS SQUIBB COMPANY-16946816

PATIENT
  Age: 61 Year
  Sex: Female
  Weight: 72.56 kg

DRUGS (2)
  1. ORENCIA [Suspect]
     Indication: PSORIATIC ARTHROPATHY
     Dosage: NEXT INFUSION:13SEP2012
     Route: 042
     Dates: start: 20120830
  2. COUMADIN [Suspect]

REACTIONS (3)
  - Headache [Unknown]
  - Chills [Unknown]
  - Fatigue [Unknown]
